FAERS Safety Report 8885043 (Version 3)
Quarter: 2013Q2

REPORT INFORMATION
  Report Type: Spontaneous
  Country: US (occurrence: US)
  Receive Date: 20121105
  Receipt Date: 20130610
  Transmission Date: 20140414
  Serious: Yes (Hospitalization)
  Sender: FDA-Public Use
  Company Number: US-BIOGENIDEC-2012BI048502

PATIENT
  Age: 34 Year
  Sex: Male

DRUGS (2)
  1. AVONEX [Suspect]
     Indication: MULTIPLE SCLEROSIS
     Route: 030
     Dates: end: 20110301
  2. AVONEX [Suspect]
     Indication: MULTIPLE SCLEROSIS
     Route: 030
     Dates: start: 20110301, end: 20121107

REACTIONS (11)
  - Plasmapheresis [Recovered/Resolved]
  - Hyperventilation [Unknown]
  - Dehydration [Unknown]
  - Catheterisation cardiac [Unknown]
  - Visual impairment [Unknown]
  - Convulsion [Recovered/Resolved]
  - Multiple sclerosis relapse [Unknown]
  - Drug ineffective [Recovered/Resolved]
  - Dizziness [Unknown]
  - Nausea [Unknown]
  - Influenza like illness [Unknown]
